FAERS Safety Report 4284863-9 (Version None)
Quarter: 2004Q1

REPORT INFORMATION
  Report Type: 
  Country: None (occurrence: None)
  Receive Date: 20040202
  Receipt Date: 20031217
  Transmission Date: 20041129
  Serious: Yes (Other)
  Sender: FDA-Public Use
  Company Number: KII-2001-0002725

PATIENT
  Age: 38 Year
  Sex: Male

DRUGS (2)
  1. OXYCONTIN [Suspect]
     Indication: CANCER PAIN
     Dosage: 90 MG, TID
  2. DURAGESIC [Suspect]
     Indication: CANCER PAIN
     Dosage: 100 MCG, SEE TEXT, TRANSDERMAL
     Route: 062

REACTIONS (2)
  - APPLICATION SITE DRYNESS [None]
  - SMALL INTESTINAL OBSTRUCTION [None]
